FAERS Safety Report 15426373 (Version 1)
Quarter: 2018Q3

REPORT INFORMATION
  Report Type: Spontaneous
  Country: US (occurrence: US)
  Receive Date: 20180925
  Receipt Date: 20180925
  Transmission Date: 20181010
  Serious: No
  Sender: FDA-Public Use
  Company Number: US-INDIVIOR LIMITED-INDV-104410-2017

PATIENT
  Age: 45 Year
  Sex: Male

DRUGS (1)
  1. SUBOXONE [Suspect]
     Active Substance: BUPRENORPHINE HYDROCHLORIDE\NALOXONE HYDROCHLORIDE
     Indication: PRODUCT USED FOR UNKNOWN INDICATION
     Dosage: UNK, 2?3 TIMES A DAY
     Route: 065
     Dates: start: 2015

REACTIONS (4)
  - Arthropod sting [Recovered/Resolved]
  - Product use issue [Unknown]
  - Allergy to arthropod sting [Unknown]
  - Malaise [Unknown]
